FAERS Safety Report 16171284 (Version 6)
Quarter: 2020Q2

REPORT INFORMATION
  Report Type: Spontaneous
  Country: US (occurrence: US)
  Receive Date: 20190408
  Receipt Date: 20200427
  Transmission Date: 20200713
  Serious: Yes (Disabling, Other)
  Sender: FDA-Public Use
  Company Number: US-PFIZER INC-2018022335

PATIENT
  Age: 69 Year
  Sex: Male
  Weight: 109.5 kg

DRUGS (13)
  1. LYRICA [Suspect]
     Active Substance: PREGABALIN
     Indication: LIMB DISCOMFORT
  2. GLUCOSAMINE [Concomitant]
     Active Substance: GLUCOSAMINE
     Indication: ARTHROPATHY
     Dosage: 1500 MG, 1X/DAY
  3. LYRICA [Suspect]
     Active Substance: PREGABALIN
     Indication: MUSCULOSKELETAL DISORDER
  4. LYRICA [Suspect]
     Active Substance: PREGABALIN
     Indication: BACK PAIN
     Dosage: 150 MG, 2X/DAY
     Route: 048
  5. LYRICA [Suspect]
     Active Substance: PREGABALIN
     Indication: SCIATICA
  6. AMLODIPINE [Concomitant]
     Active Substance: AMLODIPINE BESYLATE
     Indication: BLOOD PRESSURE ABNORMAL
     Dosage: 5 MG, 1X/DAY(TAKING FOR YEARS AT NIGHT)
     Route: 048
  7. MELOXICAM. [Concomitant]
     Active Substance: MELOXICAM
     Indication: ARTHRITIS
     Dosage: 15 MG, AS NEEDED(15 MG. ONE TABLET BY MOUTH ONCE A DAY AS NEEDED)
     Route: 048
  8. LOVASTATIN. [Concomitant]
     Active Substance: LOVASTATIN
     Indication: BLOOD PRESSURE ABNORMAL
     Dosage: UNK (100/25 ONCE A DAY BY MOUTH)
     Route: 048
  9. LOSARTAN AND HYDROCHLOROTHIAZIDE [Concomitant]
     Active Substance: HYDROCHLOROTHIAZIDE\LOSARTAN POTASSIUM
     Indication: BLOOD PRESSURE ABNORMAL
     Dosage: 125 MG, 1X/DAY
     Route: 048
  10. METOPROLOL. [Concomitant]
     Active Substance: METOPROLOL
     Indication: CARDIAC DISORDER
     Dosage: UNK, 2X/DAY(25 MG TAKE ONE HALF TABLET BY MOUTH TWICE A DAY)
     Route: 048
  11. LYRICA [Suspect]
     Active Substance: PREGABALIN
     Indication: PAIN IN EXTREMITY
  12. LYRICA [Suspect]
     Active Substance: PREGABALIN
     Indication: POLYNEUROPATHY
  13. LOVASTATIN. [Concomitant]
     Active Substance: LOVASTATIN
     Indication: BLOOD CHOLESTEROL ABNORMAL
     Dosage: 20 MG, 1X/DAY(20 MG ONE TABLET BY MOUTH DAILY AT BEDTIME)
     Route: 048

REACTIONS (3)
  - Peripheral swelling [Unknown]
  - Sight disability [Unknown]
  - Muscular weakness [Unknown]
